FAERS Safety Report 25773396 (Version 1)
Quarter: 2025Q3

REPORT INFORMATION
  Report Type: Spontaneous
  Country: EU (occurrence: EU)
  Receive Date: 20250908
  Receipt Date: 20250908
  Transmission Date: 20251020
  Serious: Yes (Disabling)
  Sender: TEVA
  Company Number: None

PATIENT
  Age: 55 Year
  Sex: Female
  Weight: 80 kg

DRUGS (1)
  1. ATORVASTATIN [Suspect]
     Active Substance: ATORVASTATIN
     Indication: Dyslipidaemia
     Dosage: ATORVASTATIN DOC GENERICS
     Route: 048
     Dates: start: 202312, end: 202403

REACTIONS (1)
  - Lichen sclerosus [Recovered/Resolved with Sequelae]

NARRATIVE: CASE EVENT DATE: 20231201
